FAERS Safety Report 19263309 (Version 1)
Quarter: 2021Q2

REPORT INFORMATION
  Report Type: Spontaneous
  Country: FR (occurrence: FR)
  Receive Date: 20210517
  Receipt Date: 20210517
  Transmission Date: 20210717
  Serious: Yes (Other)
  Sender: FDA-Public Use
  Company Number: FR-ROCHE-2829456

PATIENT
  Age: 69 Year
  Sex: Female
  Weight: 77 kg

DRUGS (2)
  1. LEVOTHYROX [Concomitant]
     Active Substance: LEVOTHYROXINE
  2. RITUXIMAB. [Suspect]
     Active Substance: RITUXIMAB
     Indication: CHRONIC LYMPHOCYTIC LEUKAEMIA
     Route: 041
     Dates: start: 20171010, end: 20171108

REACTIONS (2)
  - Aplasia pure red cell [Recovered/Resolved]
  - Autoimmune pancytopenia [Recovered/Resolved]

NARRATIVE: CASE EVENT DATE: 20171219
